FAERS Safety Report 10143658 (Version 1)
Quarter: 2014Q2

REPORT INFORMATION
  Report Type: Spontaneous
  Country: US (occurrence: US)
  Receive Date: 20140430
  Receipt Date: 20140430
  Transmission Date: 20141212
  Serious: No
  Sender: FDA-Public Use
  Company Number: US-PFIZER INC-2014116197

PATIENT
  Age: 60 Year
  Sex: Female
  Weight: 80.73 kg

DRUGS (4)
  1. XALKORI [Suspect]
     Indication: LUNG NEOPLASM MALIGNANT
     Dosage: 250 MG, 2X/DAY
     Route: 048
  2. BENADRYL [Concomitant]
     Dosage: 25 MG, UNK
     Route: 048
  3. LISINOPRIL [Concomitant]
     Dosage: 10 MG, UNK
     Route: 048
  4. ZOFRAN [Concomitant]
     Dosage: 8 MG, UNK
     Route: 048

REACTIONS (4)
  - Nausea [Unknown]
  - Rash [Unknown]
  - Pruritus [Unknown]
  - Joint swelling [Unknown]
